FAERS Safety Report 12552210 (Version 2)
Quarter: 2016Q3

REPORT INFORMATION
  Report Type: Spontaneous
  Country: US (occurrence: US)
  Receive Date: 20160713
  Receipt Date: 20160718
  Transmission Date: 20161109
  Serious: No
  Sender: FDA-Public Use
  Company Number: PHEH2016US017171

PATIENT
  Sex: Female

DRUGS (1)
  1. VIVELLE-DOT [Suspect]
     Active Substance: ESTRADIOL
     Indication: PRODUCT USED FOR UNKNOWN INDICATION
     Route: 065

REACTIONS (5)
  - Drug ineffective [Unknown]
  - Hot flush [Unknown]
  - Menopausal symptoms [Unknown]
  - Sleep disorder [Unknown]
  - Product quality issue [Unknown]

NARRATIVE: CASE EVENT DATE: 20160701
